FAERS Safety Report 23843772 (Version 1)
Quarter: 2024Q2

REPORT INFORMATION
  Report Type: Spontaneous
  Country: OM (occurrence: OM)
  Receive Date: 20240510
  Receipt Date: 20240510
  Transmission Date: 20240716
  Serious: Yes (Death, Other)
  Sender: FDA-Public Use
  Company Number: OM-002147023-NVSC2024OM098643

PATIENT
  Age: 84 Year
  Sex: Male

DRUGS (1)
  1. ELTROMBOPAG OLAMINE [Suspect]
     Active Substance: ELTROMBOPAG OLAMINE
     Indication: Myelofibrosis
     Dosage: UNK
     Route: 065

REACTIONS (7)
  - Sepsis [Fatal]
  - Splenomegaly [Unknown]
  - Thrombocytopenia [Unknown]
  - Gingival bleeding [Unknown]
  - Intra-abdominal haemorrhage [Unknown]
  - Procedural complication [Unknown]
  - Off label use [Unknown]
